FAERS Safety Report 9562987 (Version 1)
Quarter: 2013Q3

REPORT INFORMATION
  Report Type: Report from Study
  Country: DE (occurrence: DE)
  Receive Date: 20130927
  Receipt Date: 20130927
  Transmission Date: 20140515
  Serious: Yes (Hospitalization, Other)
  Sender: FDA-Public Use
  Company Number: PHHY2013DE105352

PATIENT
  Age: 54 Year
  Sex: Female
  Weight: 70 kg

DRUGS (17)
  1. MYCOPHENOLATE MOFETIL [Suspect]
     Indication: RENAL TRANSPLANT
     Dosage: 1000 MG, BID
     Route: 048
     Dates: start: 20120525
  2. MYCOPHENOLATE MOFETIL [Suspect]
     Dosage: 750 MG, BID
     Route: 048
     Dates: start: 20120704
  3. MYCOPHENOLATE MOFETIL [Suspect]
     Dosage: 500 MG, BID
     Route: 048
     Dates: start: 20130606
  4. BASILIXIMAB [Suspect]
     Indication: RENAL TRANSPLANT
     Dosage: 20 MG, QD
     Route: 042
     Dates: start: 20120525
  5. PREDNISOLONE [Suspect]
     Indication: RENAL TRANSPLANT
     Dosage: 5 MG, QD
     Route: 048
     Dates: start: 20120525
  6. TACROLIMUS [Suspect]
     Indication: RENAL TRANSPLANT
     Dosage: 9 MG, QD
     Route: 048
     Dates: start: 20120515
  7. TACROLIMUS [Suspect]
     Route: 048
     Dates: start: 20120525
  8. VALCYTE [Concomitant]
     Dosage: 450 MG, TIW
  9. RENAGEL [Concomitant]
  10. BICANORM [Concomitant]
     Dosage: 8 MG, UNK
  11. CARMEN [Concomitant]
     Dosage: 20 MG, UNK
  12. LASIX [Concomitant]
     Dosage: 80 MG, UNK
  13. LASIX [Concomitant]
     Dosage: 40 MG, UNK
  14. MOXONIDIN [Concomitant]
  15. BELOC-ZOC [Concomitant]
     Dosage: 95 MG, QD
  16. HEPARIN [Concomitant]
     Dosage: 1000 IU, UNK
  17. HEPARIN [Concomitant]
     Dosage: 2500 IU, UNK

REACTIONS (14)
  - Urinary tract infection [Unknown]
  - Circulatory collapse [Recovered/Resolved]
  - Anaemia [Unknown]
  - Ureteral necrosis [Unknown]
  - Pulmonary embolism [Recovered/Resolved]
  - Intra-abdominal haematoma [Recovered/Resolved]
  - Coagulopathy [Recovered/Resolved]
  - Haemorrhoids [Recovered/Resolved]
  - Haemorrhoidal haemorrhage [Recovered/Resolved]
  - Angina pectoris [Unknown]
  - Complications of transplanted kidney [Recovered/Resolved]
  - Nocturia [Unknown]
  - Abdominal pain [Unknown]
  - Pyrexia [Unknown]
